FAERS Safety Report 4804744-9 (Version None)
Quarter: 2005Q4

REPORT INFORMATION
  Report Type: 
  Country: None (occurrence: None)
  Receive Date: 20051017
  Receipt Date: 20051007
  Transmission Date: 20060501
  Serious: Yes (Hospitalization, Other)
  Sender: FDA-Public Use
  Company Number: HQWYE944510OCT05

PATIENT
  Age: 61 Year
  Sex: Female

DRUGS (13)
  1. TAZOCIN (PIPERACILLIN/TAZOBACTAM, INJECTION) [Suspect]
     Dosage: 14 GRAMS DAILY INTRAVENOUS
     Route: 042
     Dates: start: 20050104, end: 20050128
  2. ACETAMINOPHEN [Concomitant]
  3. MEROPENEM (MEROPENEM) [Concomitant]
  4. DICLOFENAC SODIUM [Concomitant]
  5. PERINDOPRIL (PERINDOPRIL) [Concomitant]
  6. FERROUS SULFATE TAB [Concomitant]
  7. AMITRIPTYLINE HYDROCHLORIDE [Concomitant]
  8. OXYCODONE HCL [Concomitant]
  9. VENLAFAXINE HCL [Concomitant]
  10. BACLOFEN [Concomitant]
  11. LEVOTHYROXINE SODIUM [Concomitant]
  12. CALTRATE 600 (CALCIUM CARBONATE) [Concomitant]
  13. MULTIVIT-B FORTE (CALCIUM PANTOTHENATE/NICOTINAMIDE/PYRIDOXINE HYDROCH [Concomitant]

REACTIONS (4)
  - LEUKOPENIA [None]
  - LIVER FUNCTION TEST ABNORMAL [None]
  - RENAL FUNCTION TEST ABNORMAL [None]
  - THROMBOCYTOPENIA [None]
